FAERS Safety Report 10684507 (Version 1)
Quarter: 2014Q4

REPORT INFORMATION
  Report Type: Spontaneous
  Country: NL (occurrence: NL)
  Receive Date: 20141231
  Receipt Date: 20141231
  Transmission Date: 20150529
  Serious: Yes (Hospitalization)
  Sender: FDA-Public Use
  Company Number: NL-RANBAXY-2014R1-90583

PATIENT
  Age: 72 Year
  Sex: Female

DRUGS (8)
  1. SPIRONOLACTON ACCORD TABLET OMHULD  25MG [Concomitant]
     Indication: PRODUCT USED FOR UNKNOWN INDICATION
     Dosage: 25 MG, 3/WEEK
     Route: 048
     Dates: start: 201411
  2. CALCIUM/VITAMINE D3 SANDOZ KAUWTABLET 1000MG/880IE [Concomitant]
     Indication: PRODUCT USED FOR UNKNOWN INDICATION
     Dosage: 1 DF, QD
     Route: 048
     Dates: start: 201411
  3. PNEUMOVAX 23 INJVLST FLACON 0,5ML [Concomitant]
     Indication: PRODUCT USED FOR UNKNOWN INDICATION
     Dosage: UNK
     Route: 065
     Dates: start: 201411
  4. TAMOXIFEN SANDOZ TABLET 20MG [Concomitant]
     Indication: PRODUCT USED FOR UNKNOWN INDICATION
     Dosage: 20 MG, QD
     Route: 048
     Dates: start: 201411
  5. SPIRIVA RESPIMAT OPL V INHAL 2,5MCG/DO PATR 60DO [Concomitant]
     Indication: PRODUCT USED FOR UNKNOWN INDICATION
     Dosage: 5 ?G, QD
     Route: 055
     Dates: start: 201411
  6. AMLODIPINE ACCORD TABLET  5MG [Concomitant]
     Indication: PRODUCT USED FOR UNKNOWN INDICATION
     Dosage: 5 MG, QD
     Route: 048
     Dates: start: 201411
  7. ATORVASTATINE RANBAXY 20MG FILMOMHULDE TABLETTEN [Suspect]
     Active Substance: ATORVASTATIN
     Indication: HYPERCHOLESTEROLAEMIA
     Dosage: 20 MG, QD
     Route: 048
     Dates: start: 201411
  8. ACETYLSALICYLZUUR CARDIO RP DISP TABLET 80MG [Concomitant]
     Indication: PRODUCT USED FOR UNKNOWN INDICATION
     Dosage: 80 MG, QD
     Route: 048
     Dates: start: 201411

REACTIONS (2)
  - Therapeutic response unexpected [Recovering/Resolving]
  - Laryngeal oedema [Recovering/Resolving]

NARRATIVE: CASE EVENT DATE: 20141206
